FAERS Safety Report 9121195 (Version 1)
Quarter: 2013Q1

REPORT INFORMATION
  Report Type: Spontaneous
  Country: DK (occurrence: CA)
  Receive Date: 20130225
  Receipt Date: 20130225
  Transmission Date: 20140127
  Serious: Yes (Hospitalization)
  Sender: FDA-Public Use
  Company Number: CA-FRI-1000040713

PATIENT
  Age: 16 Year
  Sex: Female

DRUGS (1)
  1. CELEXA [Suspect]
     Dosage: OVERDOSE: CITALOPRAM (600 MG)
     Route: 048
     Dates: start: 20040109, end: 20040109

REACTIONS (5)
  - Electrocardiogram QT prolonged [Recovered/Resolved]
  - Vomiting [Recovered/Resolved]
  - Anger [Recovered/Resolved]
  - Off label use [Recovered/Resolved]
  - Intentional overdose [Recovered/Resolved]
